FAERS Safety Report 7358024-0 (Version None)
Quarter: 2011Q1

REPORT INFORMATION
  Report Type: 
  Country: None (occurrence: None)
  Receive Date: 20110307
  Receipt Date: 20100624
  Transmission Date: 20110831
  Serious: No
  Sender: FDA-Public Use
  Company Number: AEUSA201000233

PATIENT
  Age: 72 Year
  Sex: Female

DRUGS (1)
  1. PROLASTIN-C [Suspect]
     Indication: PRODUCT USED FOR UNKNOWN INDICATION
     Dosage: 6000 MG;QOW;IV
     Route: 042
     Dates: start: 20100520, end: 20100603

REACTIONS (2)
  - CHEST DISCOMFORT [None]
  - RASH MACULAR [None]
